FAERS Safety Report 25182721 (Version 1)
Quarter: 2025Q2

REPORT INFORMATION
  Report Type: Spontaneous
  Country: FR (occurrence: FR)
  Receive Date: 20250410
  Receipt Date: 20250410
  Transmission Date: 20250717
  Serious: Yes (Other)
  Sender: BAXTER
  Company Number: FR-BAXTER-2025BAX013740

PATIENT
  Age: 73 Year
  Sex: Female

DRUGS (1)
  1. PROPOFOL [Suspect]
     Active Substance: PROPOFOL
     Indication: Vertebroplasty
     Route: 065

REACTIONS (4)
  - Drug ineffective [Unknown]
  - Memory impairment [Unknown]
  - Unwanted awareness during anaesthesia [Unknown]
  - Incorrect dose administered [Unknown]
